FAERS Safety Report 15593777 (Version 3)
Quarter: 2019Q3

REPORT INFORMATION
  Report Type: Report from Study
  Country: US (occurrence: US)
  Receive Date: 20181107
  Receipt Date: 20190719
  Transmission Date: 20191004
  Serious: Yes (Hospitalization)
  Sender: FDA-Public Use
  Company Number: US-ADAMAS PHARMA, LLC-2018ADA02707

PATIENT
  Age: 71 Year
  Sex: Female

DRUGS (20)
  1. SINEMET [Concomitant]
     Active Substance: CARBIDOPA\LEVODOPA
     Dosage: 1 DOSAGE UNITS, 3X/DAY
  2. ARIMIDEX [Concomitant]
     Active Substance: ANASTROZOLE
  3. COUMADIN [Concomitant]
     Active Substance: WARFARIN SODIUM
  4. PAMELOR [Concomitant]
     Active Substance: NORTRIPTYLINE HYDROCHLORIDE
  5. CALCIUM [Concomitant]
     Active Substance: CALCIUM
  6. VOLTAREN [Concomitant]
     Active Substance: DICLOFENAC SODIUM
  7. THERAGRAN [Concomitant]
     Active Substance: VITAMINS
  8. GLYCOLAX [Concomitant]
     Active Substance: POLYETHYLENE GLYCOL 3350
  9. VITAMIN C [Concomitant]
     Active Substance: ASCORBIC ACID
  10. GOCOVRI [Suspect]
     Active Substance: AMANTADINE
     Dosage: 274 MG, 1X/DAY AT BEDTIME
     Route: 048
     Dates: start: 201810, end: 201810
  11. FELDENE [Concomitant]
     Active Substance: PIROXICAM
  12. LYRICA [Concomitant]
     Active Substance: PREGABALIN
  13. REQUIP [Concomitant]
     Active Substance: ROPINIROLE HYDROCHLORIDE
  14. ASPIRIN. [Concomitant]
     Active Substance: ASPIRIN
  15. GOCOVRI [Suspect]
     Active Substance: AMANTADINE
     Indication: DYSKINESIA
     Dosage: 137 MG, 1X/DAY AT BEDTIME X7 DAYS
     Route: 048
     Dates: start: 20181008, end: 201810
  16. RIMANTADINE [Suspect]
     Active Substance: RIMANTADINE HYDROCHLORIDE
  17. LEXAPRO [Concomitant]
     Active Substance: ESCITALOPRAM OXALATE
  18. SYNTHROID [Concomitant]
     Active Substance: LEVOTHYROXINE SODIUM
  19. NAMENDA [Concomitant]
     Active Substance: MEMANTINE HYDROCHLORIDE
  20. COLACE [Concomitant]
     Active Substance: DOCUSATE SODIUM

REACTIONS (4)
  - Hallucination [Recovering/Resolving]
  - Asthenia [Recovering/Resolving]
  - Overdose [Recovered/Resolved]
  - Dizziness [Unknown]

NARRATIVE: CASE EVENT DATE: 2018
